FAERS Safety Report 9816490 (Version 1)
Quarter: 2014Q1

REPORT INFORMATION
  Report Type: Spontaneous
  Country: US (occurrence: US)
  Receive Date: 20140114
  Receipt Date: 20140114
  Transmission Date: 20141002
  Serious: Yes (Death)
  Sender: FDA-Public Use
  Company Number: US-PFIZER INC-2014007209

PATIENT
  Age: 37 Year
  Sex: Male

DRUGS (8)
  1. CYANOCOBALAMIN [Concomitant]
  2. CALCIUM WITH VITAMIN D [Concomitant]
  3. METHADONE [Concomitant]
  4. ACETAMINOPHEN/HYDROCODONE [Concomitant]
  5. FENTANYL [Suspect]
     Dosage: INCREASED FROM 75 MCG/ HR TO 100 MCG/HR WITHIN THE LAST 48 HRS
  6. FENTANYL [Suspect]
     Dosage: 50 MCG/ HR PATCH
  7. GABAPENTIN [Suspect]
     Dosage: UNK
  8. DIAZEPAM [Suspect]
     Dosage: UNK

REACTIONS (4)
  - Medication error [Fatal]
  - Cardiac arrest [Fatal]
  - Respiratory arrest [Fatal]
  - Asphyxia [Fatal]
